FAERS Safety Report 21769631 (Version 2)
Quarter: 2022Q4

REPORT INFORMATION
  Report Type: Spontaneous
  Country: PK (occurrence: PK)
  Receive Date: 20221223
  Receipt Date: 20221229
  Transmission Date: 20230113
  Serious: Yes (Other)
  Sender: FDA-Public Use
  Company Number: PK-PFIZER INC-PV202200124774

PATIENT
  Age: 28 Year
  Sex: Female

DRUGS (4)
  1. ENBREL [Suspect]
     Active Substance: ETANERCEPT
     Indication: Rheumatoid arthritis
     Dosage: AT 1WEEK INTERVALS
     Route: 058
     Dates: start: 20210923
  2. ENBREL [Suspect]
     Active Substance: ETANERCEPT
     Indication: Axial spondyloarthritis
     Dosage: UNK
     Route: 065
  3. ENBREL [Suspect]
     Active Substance: ETANERCEPT
     Indication: Peripheral spondyloarthritis
     Dosage: UNK
     Route: 065
  4. Neso [Concomitant]
     Dosage: UNK

REACTIONS (5)
  - Hypothyroidism [Unknown]
  - Alopecia [Unknown]
  - Muscle spasms [Unknown]
  - Arthralgia [Unknown]
  - Pain [Unknown]
